FAERS Safety Report 11346589 (Version 1)
Quarter: 2015Q3

REPORT INFORMATION
  Report Type: Spontaneous
  Country: US (occurrence: US)
  Receive Date: 20150803
  Receipt Date: 20150803
  Transmission Date: 20151125
  Serious: No
  Sender: FDA-Public Use
  Company Number: US-ELI_LILLY_AND_COMPANY-USA040977929

PATIENT
  Age: 54 Year
  Sex: Male
  Weight: 102.27 kg

DRUGS (7)
  1. STRATTERA [Suspect]
     Active Substance: ATOMOXETINE HYDROCHLORIDE
     Indication: ATTENTION DEFICIT/HYPERACTIVITY DISORDER
     Dosage: 40 MG, DAILY (1/D)
     Route: 048
     Dates: start: 200404
  2. PROZAC [Suspect]
     Active Substance: FLUOXETINE HYDROCHLORIDE
     Indication: TOURETTE^S DISORDER
     Dosage: 20 MG, UNKNOWN
     Dates: start: 1991, end: 1991
  3. CLONIDINE. [Concomitant]
     Active Substance: CLONIDINE
     Dosage: UNK, UNKNOWN
  4. STRATTERA [Suspect]
     Active Substance: ATOMOXETINE HYDROCHLORIDE
     Dosage: 18 MG, DAILY (1/D)
     Route: 048
     Dates: start: 20070531
  5. ATENOLOL. [Concomitant]
     Active Substance: ATENOLOL
     Indication: BLOOD PRESSURE MEASUREMENT
     Dosage: 50 MG, DAILY (1/D)
  6. WELLBUTRIN [Concomitant]
     Active Substance: BUPROPION HYDROCHLORIDE
     Indication: TOURETTE^S DISORDER
     Dosage: UNK, UNKNOWN
  7. ZOLOFT [Concomitant]
     Active Substance: SERTRALINE HYDROCHLORIDE
     Indication: TOURETTE^S DISORDER
     Dosage: UNK, UNKNOWN

REACTIONS (31)
  - Respiration abnormal [Recovered/Resolved]
  - Drug effect decreased [Not Recovered/Not Resolved]
  - Throat tightness [Recovered/Resolved]
  - Pain in extremity [Not Recovered/Not Resolved]
  - Erectile dysfunction [Recovered/Resolved]
  - Feeling abnormal [Recovered/Resolved]
  - Fatigue [Not Recovered/Not Resolved]
  - Throat irritation [Not Recovered/Not Resolved]
  - Cough [Not Recovered/Not Resolved]
  - Agitation [Not Recovered/Not Resolved]
  - Neck pain [Not Recovered/Not Resolved]
  - Muscle twitching [Not Recovered/Not Resolved]
  - Confusional state [Recovered/Resolved]
  - Paraesthesia [Recovered/Resolved]
  - Parosmia [Recovered/Resolved]
  - Nightmare [Recovered/Resolved]
  - Muscle tightness [Not Recovered/Not Resolved]
  - Agitation [Recovered/Resolved]
  - Cough [Unknown]
  - Erectile dysfunction [Recovered/Resolved]
  - Weight decreased [Unknown]
  - Energy increased [Recovered/Resolved]
  - Blood iron decreased [Not Recovered/Not Resolved]
  - Back pain [Not Recovered/Not Resolved]
  - Dizziness [Recovered/Resolved]
  - Muscle spasms [Recovered/Resolved]
  - Oedema peripheral [Recovered/Resolved]
  - Gynaecomastia [Recovered/Resolved]
  - Oesophagitis [Not Recovered/Not Resolved]
  - Oesophageal disorder [Unknown]
  - Oropharyngeal pain [Recovered/Resolved]

NARRATIVE: CASE EVENT DATE: 1991
